FAERS Safety Report 8075555-9 (Version None)
Quarter: 2012Q1

REPORT INFORMATION
  Report Type: 
  Country: None (occurrence: None)
  Receive Date: 20120127
  Receipt Date: 20120116
  Transmission Date: 20120608
  Serious: Yes (Hospitalization)
  Sender: FDA-Public Use
  Company Number: GD-BRISTOL-MYERS SQUIBB COMPANY-16351439

PATIENT
  Age: 88 Year
  Sex: Female

DRUGS (7)
  1. CLOPIDOGREL BISULFATE [Concomitant]
  2. ENALAPRIL [Concomitant]
  3. ALENDRONIC ACID [Concomitant]
  4. METOPROLOL TARTRATE [Concomitant]
  5. PRAVASTATIN [Suspect]
  6. ANASTROZOLE [Suspect]
     Indication: BREAST CANCER
     Dosage: WITH ADJUVANT HORMONAL THERAPY
  7. ASPIRIN [Concomitant]

REACTIONS (2)
  - LIVER INJURY [None]
  - DEPRESSION [None]
